FAERS Safety Report 25784289 (Version 1)
Quarter: 2025Q3

REPORT INFORMATION
  Report Type: Spontaneous
  Country: TR (occurrence: TR)
  Receive Date: 20250910
  Receipt Date: 20250910
  Transmission Date: 20251020
  Serious: Yes (Other)
  Sender: GLAND PHARMA LTD
  Company Number: TR-GLANDPHARMA-TR-2025GLNLIT01819

PATIENT
  Age: 65 Year
  Sex: Female

DRUGS (9)
  1. PACLITAXEL [Suspect]
     Active Substance: PACLITAXEL
     Indication: Breast cancer
     Route: 065
     Dates: start: 202212
  2. PACLITAXEL [Suspect]
     Active Substance: PACLITAXEL
     Indication: Bone disorder
  3. PACLITAXEL [Suspect]
     Active Substance: PACLITAXEL
     Indication: Bone disorder
  4. ZOLEDRONIC ACID [Concomitant]
     Active Substance: ZOLEDRONIC ACID
     Indication: Breast cancer metastatic
     Route: 065
  5. TAMOXIFEN [Concomitant]
     Active Substance: TAMOXIFEN
     Route: 065
  6. EVEROLIMUS [Concomitant]
     Active Substance: EVEROLIMUS
     Route: 065
  7. EXEMESTANE [Concomitant]
     Active Substance: EXEMESTANE
     Route: 065
  8. CAPECITABINE [Concomitant]
     Active Substance: CAPECITABINE
     Route: 065
  9. DEXAMETHASONE [Concomitant]
     Active Substance: DEXAMETHASONE
     Route: 065

REACTIONS (3)
  - Facial paralysis [Recovering/Resolving]
  - Neurotoxicity [Recovering/Resolving]
  - Neuritis [Recovering/Resolving]

NARRATIVE: CASE EVENT DATE: 20231201
